FAERS Safety Report 13705347 (Version 1)
Quarter: 2017Q2

REPORT INFORMATION
  Report Type: Spontaneous
  Country: RU (occurrence: RU)
  Receive Date: 20170630
  Receipt Date: 20170630
  Transmission Date: 20170830
  Serious: Yes (Hospitalization)
  Sender: FDA-Public Use
  Company Number: RU-ASTRAZENECA-2017SE67387

PATIENT
  Age: 66 Year
  Sex: Female
  Weight: 100 kg

DRUGS (6)
  1. FORXIGA [Suspect]
     Active Substance: DAPAGLIFLOZIN
     Indication: TYPE 2 DIABETES MELLITUS
     Route: 048
  2. VEROSPIRON [Concomitant]
     Active Substance: SPIRONOLACTONE
  3. PERINEVA [Concomitant]
     Active Substance: PERINDOPRIL ERBUMINE
  4. DIGOXIN. [Concomitant]
     Active Substance: DIGOXIN
  5. BISOPROLOL [Concomitant]
     Active Substance: BISOPROLOL
  6. WARFARIN [Concomitant]
     Active Substance: WARFARIN

REACTIONS (6)
  - Atrial fibrillation [Recovered/Resolved]
  - Product use in unapproved indication [Recovered/Resolved]
  - Blood glucose increased [Recovered/Resolved]
  - Weight increased [Unknown]
  - Off label use [Recovered/Resolved]
  - Therapy cessation [Unknown]

NARRATIVE: CASE EVENT DATE: 2015
